FAERS Safety Report 11980531 (Version 1)
Quarter: 2016Q1

REPORT INFORMATION
  Report Type: Spontaneous
  Country: US (occurrence: US)
  Receive Date: 20160129
  Receipt Date: 20160129
  Transmission Date: 20160526
  Serious: Yes (Other)
  Sender: FDA-Public Use
  Company Number: US-PFIZER INC-2016049535

PATIENT
  Age: 50 Year
  Sex: Female
  Weight: 73.3 kg

DRUGS (17)
  1. XANAX [Concomitant]
     Active Substance: ALPRAZOLAM
     Indication: ANXIETY
     Dosage: 1 MG, 4X/DAY
  2. LYRICA [Suspect]
     Active Substance: PREGABALIN
     Indication: NEUROPATHY PERIPHERAL
     Dosage: 75 MG, 2X/DAY
  3. XANAX [Concomitant]
     Active Substance: ALPRAZOLAM
     Indication: PANIC ATTACK
  4. REQUIP [Concomitant]
     Active Substance: ROPINIROLE HYDROCHLORIDE
     Indication: NEUROPATHY PERIPHERAL
     Dosage: 4MG TABLET THREE DAILY
  5. LINZESS [Concomitant]
     Active Substance: LINACLOTIDE
     Indication: CONSTIPATION
     Dosage: 145 UG, 1X/DAY
  6. SYMBICORT [Concomitant]
     Active Substance: BUDESONIDE\FORMOTEROL FUMARATE DIHYDRATE
     Indication: CHRONIC OBSTRUCTIVE PULMONARY DISEASE
     Dosage: 1 PUFF, 1X/DAY
  7. ALBUTEROL. [Concomitant]
     Active Substance: ALBUTEROL
     Indication: CHRONIC OBSTRUCTIVE PULMONARY DISEASE
     Dosage: UNK, 4X/DAY
  8. LYRICA [Suspect]
     Active Substance: PREGABALIN
     Indication: OSTEOARTHRITIS
  9. B12 INJECTION [Concomitant]
     Indication: IMMUNE SYSTEM DISORDER
     Dosage: 1 ML, MONTHLY
  10. PROAIR HFA [Concomitant]
     Active Substance: ALBUTEROL SULFATE
     Indication: CHRONIC OBSTRUCTIVE PULMONARY DISEASE
     Dosage: 2 PUFF, EVERY 6 HOURS
  11. LYRICA [Suspect]
     Active Substance: PREGABALIN
     Indication: FIBROMYALGIA
  12. FLU SHOT [Suspect]
     Active Substance: INFLUENZA VIRUS VACCINE
     Dates: start: 201510
  13. HYDROXYZINE HCL [Concomitant]
     Active Substance: HYDROXYZINE HYDROCHLORIDE
     Indication: ANXIETY
     Dosage: 10MG TABLET AS NEEDED EVERY 6 HOURS
     Dates: start: 201506
  14. TOPIRAMATE. [Concomitant]
     Active Substance: TOPIRAMATE
     Indication: MOOD ALTERED
     Dosage: 25 MG, 2X/DAY
  15. LYRICA [Suspect]
     Active Substance: PREGABALIN
     Indication: INTERVERTEBRAL DISC DEGENERATION
  16. SYNTHROID [Concomitant]
     Active Substance: LEVOTHYROXINE SODIUM
     Indication: THYROID DISORDER
     Dosage: 50 TABLET, DAILY
     Dates: start: 201510
  17. SPIRIVA [Concomitant]
     Active Substance: TIOTROPIUM BROMIDE MONOHYDRATE
     Indication: CHRONIC OBSTRUCTIVE PULMONARY DISEASE
     Dosage: 1 PUFF, 1X/DAY

REACTIONS (3)
  - Influenza [Not Recovered/Not Resolved]
  - Malaise [Unknown]
  - Condition aggravated [Not Recovered/Not Resolved]

NARRATIVE: CASE EVENT DATE: 20160125
